FAERS Safety Report 9709941 (Version 3)
Quarter: 2013Q4

REPORT INFORMATION
  Report Type: Spontaneous
  Country: US (occurrence: US)
  Receive Date: 20131126
  Receipt Date: 20131226
  Transmission Date: 20140711
  Serious: Yes (Life-Threatening, Hospitalization)
  Sender: FDA-Public Use
  Company Number: US-JNJFOC-20131114834

PATIENT
  Age: 77 Year
  Sex: Female
  Weight: 92.99 kg

DRUGS (22)
  1. XARELTO [Suspect]
     Indication: THROMBOSIS PROPHYLAXIS
     Route: 048
     Dates: start: 20130521, end: 20130530
  2. XARELTO [Suspect]
     Indication: KNEE ARTHROPLASTY
     Route: 048
     Dates: start: 20130521, end: 20130530
  3. KRILL OIL [Concomitant]
     Route: 065
  4. AMLODIPINE [Concomitant]
     Route: 065
  5. ASPIRIN [Concomitant]
     Route: 065
  6. BIOTIN [Concomitant]
     Route: 065
  7. CALCIUM [Concomitant]
     Route: 065
  8. CITALOPRAM [Concomitant]
     Route: 065
  9. DOCUSATE [Concomitant]
     Route: 065
  10. HCTZ [Concomitant]
     Route: 066
  11. LABETALOL [Concomitant]
     Route: 065
  12. LOSARTAN [Concomitant]
     Route: 065
  13. LOVASTATIN [Concomitant]
     Route: 065
  14. LUMIGAN [Concomitant]
     Route: 065
  15. LUTEIN [Concomitant]
     Route: 065
  16. MAGNESIUM [Concomitant]
     Route: 065
  17. MSM [Concomitant]
     Route: 065
  18. MULTIPLE VITAMIN [Concomitant]
     Dosage: 1 TABLET
     Route: 065
  19. OMEPRAZOLE [Concomitant]
     Route: 065
  20. POTASSIUM CHLORIDE [Concomitant]
     Route: 065
  21. PSYLLIUM [Concomitant]
     Route: 065
  22. WAL-ZYR GRAPE [Concomitant]
     Route: 065

REACTIONS (2)
  - Pulmonary embolism [Recovered/Resolved]
  - Drug ineffective [Unknown]
